FAERS Safety Report 12447073 (Version 2)
Quarter: 2016Q2

REPORT INFORMATION
  Report Type: Spontaneous
  Country: US (occurrence: US)
  Receive Date: 20160608
  Receipt Date: 20160608
  Transmission Date: 20160815
  Serious: Yes (Death, Other)
  Sender: FDA-Public Use
  Company Number: US-MDT-ADR-2016-01024

PATIENT
  Age: 31 Year
  Sex: Male

DRUGS (1)
  1. LIORESAL [Suspect]
     Active Substance: BACLOFEN
     Dosage: 575.9 MCG/DAY
     Route: 037

REACTIONS (7)
  - Dysphagia [Fatal]
  - Progressive multiple sclerosis [Fatal]
  - Leukodystrophy [Fatal]
  - Condition aggravated [Fatal]
  - Decubitus ulcer [Fatal]
  - Asthenia [Fatal]
  - Weight decreased [Fatal]
